FAERS Safety Report 6829416-0 (Version None)
Quarter: 2010Q3

REPORT INFORMATION
  Report Type: 
  Country: None (occurrence: None)
  Receive Date: 20100709
  Receipt Date: 20070309
  Transmission Date: 20110219
  Serious: Yes (Other)
  Sender: FDA-Public Use
  Company Number: US-PFIZER INC-2007019992

PATIENT
  Sex: Female
  Weight: 77.1 kg

DRUGS (10)
  1. CHANTIX [Suspect]
     Indication: SMOKING CESSATION THERAPY
     Dates: start: 20070309
  2. SPIRIVA [Concomitant]
  3. MAXAIR [Concomitant]
  4. PULMICORT [Concomitant]
  5. OXYGEN [Concomitant]
  6. GLUCOPHAGE [Concomitant]
  7. ZANTAC [Concomitant]
  8. LORAZEPAM [Concomitant]
  9. DOXEPIN HCL [Concomitant]
  10. ALL OTHER THERAPEUTIC PRODUCTS [Concomitant]

REACTIONS (6)
  - COLD SWEAT [None]
  - DYSPNOEA [None]
  - EYELID DISORDER [None]
  - GASTRIC DISORDER [None]
  - HEADACHE [None]
  - VISION BLURRED [None]
